FAERS Safety Report 10241503 (Version 1)
Quarter: 2014Q2

REPORT INFORMATION
  Report Type: Spontaneous
  Country: CO (occurrence: CO)
  Receive Date: 20140617
  Receipt Date: 20140617
  Transmission Date: 20141212
  Serious: Yes (Other)
  Sender: FDA-Public Use
  Company Number: CO-PFIZER INC-2014160234

PATIENT
  Age: 6 Year
  Sex: Male

DRUGS (1)
  1. GENOTROPIN [Suspect]
     Indication: SMALL FOR DATES BABY
     Dosage: 0.6 MG, DAILY
     Route: 058
     Dates: start: 2012

REACTIONS (1)
  - Ear disorder [Unknown]
